FAERS Safety Report 10658561 (Version 1)
Quarter: 2014Q4

REPORT INFORMATION
  Report Type: Spontaneous
  Country: US (occurrence: US)
  Receive Date: 20141217
  Receipt Date: 20141217
  Transmission Date: 20150529
  Serious: No
  Sender: FDA-Public Use
  Company Number: US-GLAXOSMITHKLINE-A1069369A

PATIENT

DRUGS (8)
  1. CENTRUM SILVER [Concomitant]
     Active Substance: VITAMINS
  2. VOTRIENT [Suspect]
     Active Substance: PAZOPANIB HYDROCHLORIDE
     Indication: RENAL CELL CARCINOMA
     Dosage: 200 MG TABLETS, 4 TABLETS DAILY, TOTAL DAILY DOSE OF 800 MG
     Route: 048
  3. SENOKOT [Concomitant]
     Active Substance: SENNOSIDES
  4. LISINOPRIL. [Concomitant]
     Active Substance: LISINOPRIL
  5. MORPHINE SULFATE. [Concomitant]
     Active Substance: MORPHINE SULFATE
  6. ZYRTEC [Concomitant]
     Active Substance: CETIRIZINE HYDROCHLORIDE
  7. COLACE [Concomitant]
     Active Substance: DOCUSATE SODIUM
  8. CLARITIN [Concomitant]
     Active Substance: LORATADINE

REACTIONS (2)
  - Disease progression [Unknown]
  - Drug ineffective [Unknown]
